FAERS Safety Report 5775340-4 (Version None)
Quarter: 2008Q2

REPORT INFORMATION
  Report Type: 
  Country: None (occurrence: None)
  Receive Date: 20080617
  Receipt Date: 20080606
  Transmission Date: 20081010
  Serious: Yes (Hospitalization, Other)
  Sender: FDA-Public Use
  Company Number: JP-NOVOPROD-276346

PATIENT
  Age: 81 Year
  Sex: Male
  Weight: 52 kg

DRUGS (2)
  1. LEVEMIR [Suspect]
     Indication: TYPE 2 DIABETES MELLITUS
     Route: 058
     Dates: start: 20080118, end: 20080506
  2. NPH ILETIN I                       /00030504/ [Concomitant]
     Indication: TYPE 2 DIABETES MELLITUS

REACTIONS (2)
  - EOSINOPHIL COUNT INCREASED [None]
  - SENSORY DISTURBANCE [None]
